FAERS Safety Report 6419693-2 (Version None)
Quarter: 2009Q4

REPORT INFORMATION
  Report Type: 
  Country: None (occurrence: None)
  Receive Date: 20091029
  Receipt Date: 20091021
  Transmission Date: 20100525
  Serious: Yes (Hospitalization)
  Sender: FDA-Public Use
  Company Number: B0599306A

PATIENT
  Sex: Female
  Weight: 68.2 kg

DRUGS (5)
  1. LAPATINIB [Suspect]
     Dosage: 1250MG PER DAY
     Route: 048
     Dates: start: 20090611
  2. DOCETAXEL [Suspect]
     Dosage: 122MG EVERY 3 WEEKS
     Route: 042
     Dates: start: 20090930
  3. PROCHLORPERAZINE [Concomitant]
     Indication: NAUSEA
  4. DOLASETRON [Concomitant]
     Indication: NAUSEA
     Dates: start: 20090609
  5. LORATADINE [Concomitant]
     Indication: PREMEDICATION
     Dates: start: 20090609

REACTIONS (1)
  - PELVIC PAIN [None]
